FAERS Safety Report 9771347 (Version 1)
Quarter: 2013Q4

REPORT INFORMATION
  Report Type: Spontaneous
  Country: US (occurrence: US)
  Receive Date: 20131218
  Receipt Date: 20131218
  Transmission Date: 20140711
  Serious: Yes (Hospitalization)
  Sender: FDA-Public Use
  Company Number: PHEH2013US025895

PATIENT
  Sex: Male

DRUGS (9)
  1. MYFORTIC [Suspect]
     Dosage: 530 MG (2 TABLETS OF 265 MG PER DAY)
     Route: 048
     Dates: start: 20121128
  2. PROGRAF [Concomitant]
     Dosage: 3 MG, DAY ( 2 PER DAY)
  3. METOPROLOL [Concomitant]
     Dosage: 50 MG, DAY
  4. PRILOSEC [Concomitant]
     Dosage: 20 MG, DAY
  5. PROZAC [Concomitant]
     Dosage: 20 MG, DAY
  6. OXYCODONE [Concomitant]
     Dosage: 40 MG, PRN (4 A DAY AS NEEDED)
  7. COLACE [Concomitant]
     Dosage: 300 UKN, DAY (3 PER DAY)
  8. OSCAL [Concomitant]
     Dosage: 3 DF PER DAY
  9. MULTIVITAMIN//VITAMINS NOS [Concomitant]
     Dosage: UNK UKN, UNK

REACTIONS (5)
  - Fluid retention [Unknown]
  - Vein disorder [Unknown]
  - Cytomegalovirus infection [Unknown]
  - Hernia [Unknown]
  - Memory impairment [Unknown]
